FAERS Safety Report 8964572 (Version 2)
Quarter: 2013Q1

REPORT INFORMATION
  Report Type: Spontaneous
  Country: US (occurrence: US)
  Receive Date: 20121214
  Receipt Date: 20130111
  Transmission Date: 20140127
  Serious: Yes (Other)
  Sender: FDA-Public Use
  Company Number: US-BRISTOL-MYERS SQUIBB COMPANY-17179516

PATIENT
  Age: 50 Year
  Sex: Female

DRUGS (1)
  1. ORENCIA [Suspect]
     Dosage: DATE OF LAST INFUSION:  28NOV2012,28DEC12
     Route: 042

REACTIONS (5)
  - Fall [Unknown]
  - Foot fracture [Unknown]
  - Paraesthesia [Unknown]
  - Muscle spasms [Unknown]
  - Drug effect decreased [Unknown]
